FAERS Safety Report 5708219-4 (Version None)
Quarter: 2008Q2

REPORT INFORMATION
  Report Type: 
  Country: None (occurrence: None)
  Receive Date: 20080417
  Receipt Date: 20080402
  Transmission Date: 20081010
  Serious: Yes (Hospitalization)
  Sender: FDA-Public Use
  Company Number: GB-GENENTECH-257934

PATIENT
  Sex: Female
  Weight: 66.3 kg

DRUGS (3)
  1. BEVACIZUMAB [Suspect]
     Indication: COLON CANCER
     Dosage: 500 MG, Q3W
     Route: 042
     Dates: start: 20080306, end: 20080311
  2. CAPECITABINE [Suspect]
     Indication: COLON CANCER
     Dosage: 2500 MG, BID
     Route: 048
     Dates: start: 20080306, end: 20080311
  3. GLUCOSAMINE [Concomitant]
     Indication: DRUG USE FOR UNKNOWN INDICATION

REACTIONS (1)
  - ATRIAL FIBRILLATION [None]
